FAERS Safety Report 4833309-8 (Version None)
Quarter: 2005Q4

REPORT INFORMATION
  Report Type: 
  Country: None (occurrence: None)
  Receive Date: 20051117
  Receipt Date: 20051107
  Transmission Date: 20060501
  Serious: Yes (Life-Threatening)
  Sender: FDA-Public Use
  Company Number: 2005-11-0549

PATIENT
  Age: 74 Year
  Sex: Male

DRUGS (2)
  1. FLUTAMIDE [Suspect]
     Indication: PROSTATE CANCER
     Dosage: 375MG ORAL
     Route: 048
     Dates: start: 20050706, end: 20051003
  2. LEUPRORELIN ACETATE INJECTABLE [Suspect]
     Indication: PROSTATE CANCER
     Dosage: 3.75MG SUBCUTANEOUS
     Route: 058
     Dates: start: 20050823, end: 20050823

REACTIONS (4)
  - APLASTIC ANAEMIA [None]
  - HAEMOLYTIC ANAEMIA [None]
  - LABORATORY TEST ABNORMAL [None]
  - METASTASES TO BONE [None]
